FAERS Safety Report 5765418-3 (Version None)
Quarter: 2008Q2

REPORT INFORMATION
  Report Type: 
  Country: None (occurrence: None)
  Receive Date: 20080611
  Receipt Date: 20080611
  Transmission Date: 20081010
  Serious: Yes (Other)
  Sender: FDA-Public Use
  Company Number: A0732339A

PATIENT
  Age: 68 Year
  Sex: Female
  Weight: 62 kg

DRUGS (3)
  1. ALLI [Suspect]
     Dates: start: 20080503
  2. ASPIRIN [Concomitant]
     Dates: start: 20030101
  3. GNC MULTIVITAMIN [Concomitant]

REACTIONS (2)
  - ANAL HAEMORRHAGE [None]
  - RECTAL HAEMORRHAGE [None]
